FAERS Safety Report 9225050 (Version 1)
Quarter: 2013Q2

REPORT INFORMATION
  Report Type: Spontaneous
  Country: US (occurrence: None)
  Receive Date: 20130410
  Receipt Date: 20130410
  Transmission Date: 20140414
  Serious: Yes (Death, Life-Threatening, Hospitalization, Disabling)
  Sender: FDA-Public Use
  Company Number: None

PATIENT
  Age: 61 Year
  Sex: Male
  Weight: 68 kg

DRUGS (3)
  1. COLISTIMETHATE [Suspect]
     Indication: URINARY TRACT INFECTION
     Dosage: 120 MG EVERY 8 HOURS IV
     Route: 042
     Dates: start: 20130104, end: 20130107
  2. COLISTIMETHATE [Suspect]
     Indication: KLEBSIELLA INFECTION
     Dosage: 120 MG EVERY 8 HOURS IV
     Route: 042
     Dates: start: 20130104, end: 20130107
  3. COLISTIMETHATE [Suspect]
     Dosage: 80 MG  EVERY 12 HOURS IV
     Route: 042
     Dates: start: 20130108, end: 20130109

REACTIONS (2)
  - Septic shock [None]
  - Blood creatinine increased [None]
